FAERS Safety Report 10084017 (Version 2)
Quarter: 2014Q2

REPORT INFORMATION
  Report Type: Spontaneous
  Country: FR (occurrence: FR)
  Receive Date: 20140417
  Receipt Date: 20140417
  Transmission Date: 20141212
  Serious: Yes (Other)
  Sender: FDA-Public Use
  Company Number: FR-009507513-1404FRA003703

PATIENT
  Age: 19 Year
  Sex: Female
  Weight: 49 kg

DRUGS (1)
  1. IMPLANON [Suspect]
     Indication: CONTRACEPTION
     Dosage: UNK
     Dates: start: 20101018, end: 20140403

REACTIONS (9)
  - Surgery [Recovered/Resolved]
  - General anaesthesia [Unknown]
  - Device difficult to use [Unknown]
  - Device deployment issue [Unknown]
  - Incorrect route of drug administration [Unknown]
  - Medical device complication [Unknown]
  - Weight decreased [Unknown]
  - Weight increased [Unknown]
  - Incorrect drug administration duration [Unknown]
